FAERS Safety Report 7260367 (Version 2)
Quarter: 2014Q1

REPORT INFORMATION
  Report Type: Spontaneous
  Country: US (occurrence: None)
  Receive Date: 20100119
  Receipt Date: 20140225
  Transmission Date: 20141002
  Serious: Yes (Hospitalization, Other)
  Sender: FDA-Public Use
  Company Number: 2010S1000109

PATIENT
  Age: 74 Year
  Sex: Female

DRUGS (11)
  1. FLEET PHOSPHO-SODA ORAL SALINE LAXATIVE, GINGER-LEMON FLAVOR (ORAL SOLUTION) [Suspect]
     Indication: COLONOSCOPY
     Dosage: 90 ML, 2 IN 24 HOURS, ORAL
     Route: 048
     Dates: start: 20080901, end: 20080901
  2. STOOL SOFTENERS (DOCUSATE SODIUM) [Suspect]
     Indication: COLONOSCOPY
     Dosage: TWO STOOL SOFTENERS, ORAL
     Route: 048
     Dates: start: 20080901, end: 20080901
  3. ASPIRIN (ACETYLSALICYLIC ACID) [Concomitant]
  4. LEVOTHYROXINE (LEVOTHYROXINE) [Concomitant]
  5. ATENOLOL (ATENOLOL) [Concomitant]
  6. LIPITOR (ATORVASTATIN CALCIUM) [Concomitant]
  7. NIASPAN (NICOTINIC ACID) [Concomitant]
  8. ACCUPRIL (QUINAPRIL HYDROCHLORIDE) [Concomitant]
  9. AZMACORT (TRIAMCINOLONE ACETONIDE) [Concomitant]
  10. ALBUTEROL (SALBUTAMOL) [Concomitant]
  11. ATROVENT (IPRATROPIUM BROMIDE) [Concomitant]

REACTIONS (15)
  - Vomiting [None]
  - Fall [None]
  - Syncope [None]
  - Chest pain [None]
  - Dehydration [None]
  - Renal failure acute [None]
  - Loss of consciousness [None]
  - Hypokalaemia [None]
  - Laboratory test interference [None]
  - Gastric ulcer [None]
  - Hypotension [None]
  - Iron deficiency anaemia [None]
  - Nephrogenic anaemia [None]
  - Inappropriate schedule of drug administration [None]
  - Labelled drug-disease interaction medication error [None]
